FAERS Safety Report 18264418 (Version 3)
Quarter: 2021Q2

REPORT INFORMATION
  Report Type: Spontaneous
  Country: CA (occurrence: CA)
  Receive Date: 20200914
  Receipt Date: 20210519
  Transmission Date: 20210717
  Serious: Yes (Other)
  Sender: FDA-Public Use
  Company Number: CA-PFIZER INC-2020353302

PATIENT
  Age: 55 Year
  Sex: Female

DRUGS (17)
  1. MODAFINIL. [Concomitant]
     Active Substance: MODAFINIL
     Dosage: 100 MILLIGRAM, BID
     Route: 065
  2. OSTO?D2 [Concomitant]
     Dosage: 50000 INTERNATIONAL UNIT, 1/WEEK
     Route: 065
  3. AIMOVIG [Suspect]
     Active Substance: ERENUMAB-AOOE
     Indication: MIGRAINE
     Dosage: 140 MG, MONTHLY
     Route: 058
  4. FERROUS FUMARATE [Concomitant]
     Active Substance: FERROUS FUMARATE
     Dosage: 300 MILLIGRAM
     Route: 065
  5. OSTO?D2 [Concomitant]
     Dosage: UNK, 1/WEEK
     Route: 065
  6. CANDESARTAN. [Suspect]
     Active Substance: CANDESARTAN
     Indication: BLOOD PRESSURE ABNORMAL
     Dosage: 16 MG
     Route: 048
  7. CANDESARTAN. [Suspect]
     Active Substance: CANDESARTAN
     Dosage: 8 MG
     Route: 048
     Dates: start: 20200210
  8. FERROUS FUMARATE [Concomitant]
     Active Substance: FERROUS FUMARATE
     Dosage: 300 MILLIGRAM
     Route: 065
  9. CANDESARTAN. [Suspect]
     Active Substance: CANDESARTAN
     Indication: MIGRAINE
     Dosage: 16 MG
     Route: 048
  10. NAPROXEN. [Concomitant]
     Active Substance: NAPROXEN
     Dosage: 500 MILLIGRAM
     Route: 065
  11. PANTOPRAZOLE [Suspect]
     Active Substance: PANTOPRAZOLE
     Indication: MIGRAINE
     Dosage: 40 MG, 2X/DAY
     Route: 065
     Dates: start: 20200210
  12. CANDESARTAN. [Suspect]
     Active Substance: CANDESARTAN
     Dosage: 8 MG
     Route: 048
     Dates: start: 20200210
  13. FLUOXETINE HYDROCHLORIDE. [Suspect]
     Active Substance: FLUOXETINE HYDROCHLORIDE
     Indication: MIGRAINE
     Dosage: 20 MG
     Route: 065
     Dates: start: 20200210
  14. NAPROXEN. [Concomitant]
     Active Substance: NAPROXEN
     Dosage: 500 MILLIGRAM
     Route: 065
  15. MODAFINIL. [Concomitant]
     Active Substance: MODAFINIL
     Dosage: 100 MILLIGRAM, BID
     Route: 065
  16. OSTO?D2 [Concomitant]
     Dosage: UNK, 1/WEEK
     Route: 065
  17. TOPIRAMATE. [Suspect]
     Active Substance: TOPIRAMATE
     Indication: MIGRAINE
     Dosage: UNK
     Route: 065
     Dates: start: 20200210

REACTIONS (14)
  - Hypertension [Unknown]
  - Nausea [Recovering/Resolving]
  - Drug intolerance [Unknown]
  - Dysstasia [Unknown]
  - Eye pain [Unknown]
  - Hypoaesthesia oral [Unknown]
  - Pain of skin [Unknown]
  - Therapeutic product effect decreased [Unknown]
  - Blood pressure measurement [Unknown]
  - Heart rate [Unknown]
  - Photophobia [Unknown]
  - Swelling face [Unknown]
  - Headache [Unknown]
  - Off label use [Unknown]
